FAERS Safety Report 8096049-0 (Version None)
Quarter: 2012Q1

REPORT INFORMATION
  Report Type: 
  Country: None (occurrence: None)
  Receive Date: 20120129
  Receipt Date: 20111214
  Transmission Date: 20120608
  Serious: Yes (Hospitalization)
  Sender: FDA-Public Use
  Company Number: US-ABBOTT-11P-163-0883765-00

PATIENT
  Sex: Female
  Weight: 167.98 kg

DRUGS (10)
  1. HUMIRA [Suspect]
     Indication: RHEUMATOID ARTHRITIS
     Route: 058
     Dates: start: 20110301
  2. LEVOTHYROXINE SODIUM [Concomitant]
     Indication: HYPOTHYROIDISM
  3. METHOTREXATE [Concomitant]
     Indication: RHEUMATOID ARTHRITIS
  4. DIOVAN [Concomitant]
     Indication: HYPERTENSION
  5. SIMVASTATIN [Concomitant]
     Indication: BLOOD CHOLESTEROL INCREASED
  6. FOLIC ACID [Concomitant]
     Indication: RHEUMATOID ARTHRITIS
  7. GLYBURIDE [Concomitant]
     Indication: DIABETES MELLITUS
  8. METFORMIN HCL [Concomitant]
     Indication: DIABETES MELLITUS
  9. ARTHROTEC [Concomitant]
     Indication: RHEUMATOID ARTHRITIS
  10. MULTIPLE VITAMIN [Concomitant]
     Indication: VITAMIN SUPPLEMENTATION

REACTIONS (6)
  - FEELING ABNORMAL [None]
  - DEHYDRATION [None]
  - ARTHRALGIA [None]
  - PNEUMONIA [None]
  - POLLAKIURIA [None]
  - PYREXIA [None]
